FAERS Safety Report 16722999 (Version 2)
Quarter: 2019Q3

REPORT INFORMATION
  Report Type: Other
  Country: US (occurrence: US)
  Receive Date: 20190821
  Receipt Date: 20190929
  Transmission Date: 20191005
  Serious: Yes (Hospitalization, Other)
  Sender: FDA-Public Use
  Company Number: US-GLAND PHARMA LIMITED-2073428

PATIENT
  Age: 64 Year
  Sex: Female

DRUGS (3)
  1. CARBOPLATIN. [Suspect]
     Active Substance: CARBOPLATIN
     Indication: NON-SMALL CELL LUNG CANCER
  2. PEMETREXED. [Suspect]
     Active Substance: PEMETREXED
  3. PEMBROLIZUMAB-HISTORICAL DRUG [Concomitant]

REACTIONS (3)
  - Infection [None]
  - Pelvic pain [None]
  - Cerebrovascular accident [None]
